FAERS Safety Report 24968591 (Version 1)
Quarter: 2025Q1

REPORT INFORMATION
  Report Type: Spontaneous
  Country: CA (occurrence: CA)
  Receive Date: 20250214
  Receipt Date: 20250214
  Transmission Date: 20250409
  Serious: Yes (Other)
  Sender: CSL BEHRING
  Company Number: CA-BEH-2025195288

PATIENT
  Age: 68 Year
  Sex: Male

DRUGS (7)
  1. HUMAN IMMUNOGLOBULIN G [Suspect]
     Active Substance: HUMAN IMMUNOGLOBULIN G
     Indication: Product used for unknown indication
     Dosage: UNK, QD
     Route: 042
  2. HUMAN IMMUNOGLOBULIN G [Suspect]
     Active Substance: HUMAN IMMUNOGLOBULIN G
     Dosage: UNK, QD
     Route: 042
  3. HUMAN IMMUNOGLOBULIN G [Suspect]
     Active Substance: HUMAN IMMUNOGLOBULIN G
     Dosage: UNK, QD
     Route: 042
  4. HUMAN IMMUNOGLOBULIN G [Suspect]
     Active Substance: HUMAN IMMUNOGLOBULIN G
     Dosage: UNK, QD
     Route: 042
  5. HEPARIN SODIUM [Suspect]
     Active Substance: HEPARIN SODIUM
     Indication: Thrombosis prophylaxis
     Dosage: 5000 IU, QD
     Route: 058
  6. HEPARIN SODIUM [Suspect]
     Active Substance: HEPARIN SODIUM
     Route: 058
  7. HEPARIN SODIUM [Suspect]
     Active Substance: HEPARIN SODIUM
     Route: 058

REACTIONS (5)
  - Autoimmune heparin-induced thrombocytopenia [Recovered/Resolved]
  - Cerebrovascular accident [Recovered/Resolved]
  - Iliac artery occlusion [Recovered/Resolved]
  - Ischaemic stroke [Recovered/Resolved]
  - Peripheral ischaemia [Recovered/Resolved]
